FAERS Safety Report 10246777 (Version 2)
Quarter: 2014Q2

REPORT INFORMATION
  Report Type: Report from Study
  Country: AU (occurrence: AU)
  Receive Date: 20140619
  Receipt Date: 20140619
  Transmission Date: 20141212
  Serious: Yes (Other)
  Sender: FDA-Public Use
  Company Number: PHHY2014AU069087

PATIENT
  Sex: Male

DRUGS (1)
  1. CLOZARIL [Suspect]
     Indication: SCHIZOPHRENIA
     Dosage: 50 MG, UNK
     Route: 048
     Dates: start: 20140526

REACTIONS (8)
  - Aggression [Unknown]
  - Psychotic disorder [Unknown]
  - Irritability [Unknown]
  - Paranoia [Unknown]
  - Abnormal behaviour [Unknown]
  - Emotional distress [Unknown]
  - Malaise [Unknown]
  - Agitation [Unknown]
